FAERS Safety Report 7918092-1 (Version None)
Quarter: 2011Q4

REPORT INFORMATION
  Report Type: 
  Country: None (occurrence: None)
  Receive Date: 20111116
  Receipt Date: 20110811
  Transmission Date: 20120403
  Serious: No
  Sender: FDA-Public Use
  Company Number: US-BAYER-2011-073358

PATIENT
  Sex: Male

DRUGS (3)
  1. ALEVE (CAPLET) [Suspect]
     Indication: BACK PAIN
     Dosage: 2 DF, ONCE
     Dates: start: 20110808
  2. ACETAMINOPHEN [Suspect]
     Indication: BACK PAIN
     Dosage: 2 DF, ONCE
     Dates: start: 20110808
  3. IBUPROFEN [Suspect]
     Dosage: 3 DF, ONCE
     Dates: start: 20110808

REACTIONS (2)
  - BACK PAIN [None]
  - MIGRAINE [None]
